FAERS Safety Report 10160813 (Version 1)
Quarter: 2014Q2

REPORT INFORMATION
  Report Type: Spontaneous
  Country: US (occurrence: US)
  Receive Date: 20140508
  Receipt Date: 20140508
  Transmission Date: 20141212
  Serious: Yes (Other)
  Sender: FDA-Public Use
  Company Number: US-ACTAVIS-2014-09445

PATIENT
  Age: 19 Month
  Sex: Male

DRUGS (6)
  1. DIPHENHYDRAMINE (WATSON LABORATORIES) [Suspect]
     Indication: PRODUCT USED FOR UNKNOWN INDICATION
     Dosage: UNKNOWN
     Route: 065
  2. VANCOMYCIN HCL (WATSON LABORATORIES) [Suspect]
     Indication: PYREXIA
     Dosage: UNKNOWN
     Route: 065
  3. VANCOMYCIN HCL (WATSON LABORATORIES) [Suspect]
     Indication: NEUTROPENIA
  4. HYDROCORTISONE [Concomitant]
     Indication: PRODUCT USED FOR UNKNOWN INDICATION
     Dosage: 1 MG/KG, UNKNOWN
     Route: 065
  5. HYDROXYZINE [Concomitant]
     Indication: PRODUCT USED FOR UNKNOWN INDICATION
     Dosage: 1 MG/KG, UNKNOWN
     Route: 065
  6. RANITIDINE [Concomitant]
     Indication: PRODUCT USED FOR UNKNOWN INDICATION
     Dosage: 1 MG/KG, UNKNOWN
     Route: 065

REACTIONS (5)
  - Red man syndrome [Unknown]
  - Angioedema [Unknown]
  - Rash maculo-papular [Unknown]
  - Dyspnoea [Unknown]
  - Drug hypersensitivity [Unknown]
